FAERS Safety Report 8010861-5 (Version None)
Quarter: 2011Q4

REPORT INFORMATION
  Report Type: 
  Country: None (occurrence: None)
  Receive Date: 20111222
  Receipt Date: 20111212
  Transmission Date: 20120403
  Serious: Yes (Other)
  Sender: FDA-Public Use
  Company Number: AUR-APL-2011-06009

PATIENT
  Age: 34 Year
  Sex: Female

DRUGS (3)
  1. ACETAMINOPHEN [Concomitant]
  2. RISPERIDONE [Suspect]
     Indication: PSYCHOTIC DISORDER
     Dosage: (2 DOSAGE FORMS),ORAL ; 4 MG (4 MG,1 IN 1 D),ORAL
     Route: 048
     Dates: start: 20110822
  3. HYOSCINE HYDROBROMIDE (HYOSCINE HYDROBROMDE) [Concomitant]

REACTIONS (3)
  - BLOOD CREATINE PHOSPHOKINASE INCREASED [None]
  - ARTHRALGIA [None]
  - FIBRIN D DIMER INCREASED [None]
